FAERS Safety Report 6294256-0 (Version None)
Quarter: 2009Q3

REPORT INFORMATION
  Report Type: 
  Country: None (occurrence: None)
  Receive Date: 20090803
  Receipt Date: 20090413
  Transmission Date: 20100115
  Serious: No
  Sender: FDA-Public Use
  Company Number: A0778338A

PATIENT
  Age: 43 Year
  Sex: Female

DRUGS (1)
  1. NICORETTE [Suspect]
     Dates: start: 20090409, end: 20090412

REACTIONS (6)
  - DIZZINESS [None]
  - DYSPEPSIA [None]
  - NAUSEA [None]
  - ORAL PAIN [None]
  - PALPITATIONS [None]
  - STOMATITIS [None]
